FAERS Safety Report 8375189 (Version 2)
Quarter: 2013Q1

REPORT INFORMATION
  Report Type: Report from Study
  Country: US (occurrence: US)
  Receive Date: 20120129
  Receipt Date: 20130130
  Transmission Date: 20140127
  Serious: No
  Sender: FDA-Public Use
  Company Number: US-ABBOTT-12P-163-0888624-00

PATIENT
  Sex: Male

DRUGS (4)
  1. HUMIRA 40 MG/0.8 ML PEN [Suspect]
     Indication: PSORIASIS
     Dates: start: 201111
  2. DESONIDE [Concomitant]
     Dosage: 0.05% OINTMENT
  3. TACLONEX [Concomitant]
     Dosage: OINTMENT
  4. VITAMIN C [Concomitant]
     Dosage: 500 MG TABLET

REACTIONS (3)
  - Dizziness [Unknown]
  - Visual impairment [Unknown]
  - Bladder pain [Unknown]
